FAERS Safety Report 14351601 (Version 1)
Quarter: 2018Q1

REPORT INFORMATION
  Report Type: Spontaneous
  Country: US (occurrence: US)
  Receive Date: 20180104
  Receipt Date: 20180104
  Transmission Date: 20180509
  Serious: Yes (Hospitalization)
  Sender: FDA-Public Use
  Company Number: US-OTSUKA-2017_028355

PATIENT
  Age: 19 Month
  Sex: Male

DRUGS (1)
  1. ABILIFY [Suspect]
     Active Substance: ARIPIPRAZOLE
     Indication: ACCIDENTAL EXPOSURE TO PRODUCT
     Dosage: 75 MG (7.5 ABILIFY, 10MG TABLETS), SINGLE (AT ONCE)
     Route: 048
     Dates: start: 20171222

REACTIONS (4)
  - Accidental overdose [Unknown]
  - Crying [Unknown]
  - Wrong technique in product usage process [Unknown]
  - Agitation [Unknown]

NARRATIVE: CASE EVENT DATE: 20171222
